FAERS Safety Report 6051824-9 (Version None)
Quarter: 2009Q1

REPORT INFORMATION
  Report Type: 
  Country: None (occurrence: None)
  Receive Date: 20090126
  Receipt Date: 20090121
  Transmission Date: 20090719
  Serious: Yes (Other)
  Sender: FDA-Public Use
  Company Number: PHHY2008ZA29681

PATIENT
  Sex: Female

DRUGS (2)
  1. ACLASTA [Suspect]
     Dosage: 5 MG/100 ML
  2. ANTIDEPRESSANTS [Concomitant]
     Dosage: UNK

REACTIONS (2)
  - DEPRESSION [None]
  - HEADACHE [None]
